FAERS Safety Report 8125533-6 (Version None)
Quarter: 2012Q1

REPORT INFORMATION
  Report Type: 
  Country: None (occurrence: None)
  Receive Date: 20120209
  Receipt Date: 20111221
  Transmission Date: 20120608
  Serious: Yes (Hospitalization)
  Sender: FDA-Public Use
  Company Number: PHHO2011CO020935

PATIENT
  Sex: Female
  Weight: 68.7 kg

DRUGS (12)
  1. VALSARTAN [Suspect]
     Indication: CARDIAC FAILURE CHRONIC
     Dosage: RUN-IN PHASE
  2. LOVASTATIN [Concomitant]
     Indication: CORONARY ARTERY DISEASE
     Dosage: 40 MG, QD
     Dates: start: 20111124
  3. FUROSEMIDE [Suspect]
     Indication: CARDIAC FAILURE CHRONIC
     Dosage: 40 MG, QD
     Dates: start: 20080101, end: 20111213
  4. BLINDED NO TREATMENT RECEIVED [Suspect]
     Indication: CARDIAC FAILURE CHRONIC
     Dosage: RUN-IN PHASE
  5. ACETYLSALICYLIC ACID SRT [Concomitant]
     Indication: CORONARY ARTERY DISEASE
     Dosage: 100 MG, QD
     Dates: start: 19810101, end: 20111213
  6. VALSARTAN [Suspect]
     Dosage: 100 MG, UNK
     Route: 048
     Dates: start: 20111217
  7. DIGOXIN [Concomitant]
     Indication: CARDIAC FAILURE CHRONIC
     Dosage: 7 DROPS, QD
     Dates: start: 20080101, end: 20111213
  8. ENALAPRIL MALEATE [Suspect]
     Indication: CARDIAC FAILURE CHRONIC
     Dosage: 10 MG, UNK
     Route: 048
     Dates: start: 20111124, end: 20111208
  9. VALSARTAN [Suspect]
     Indication: CARDIAC FAILURE CHRONIC
     Dosage: 100 MG, UNK
     Route: 048
     Dates: start: 20111210, end: 20111213
  10. ENALAPRIL MALEATE [Suspect]
     Indication: CARDIAC FAILURE CHRONIC
     Dosage: RUN-IN PHASE
  11. SPIRONOLACTONE [Suspect]
     Indication: CARDIAC FAILURE CHRONIC
     Dosage: 25 MG, QD
     Dates: start: 20080101
  12. METOCLOPRAMIDE [Concomitant]
     Indication: CARDIAC FAILURE CHRONIC
     Dosage: 50 MG, QD
     Dates: start: 20070101

REACTIONS (5)
  - PRESYNCOPE [None]
  - RESPIRATORY RATE INCREASED [None]
  - RALES [None]
  - BLOOD PRESSURE DIASTOLIC DECREASED [None]
  - AORTIC ARTERIOSCLEROSIS [None]
